FAERS Safety Report 16404071 (Version 1)
Quarter: 2019Q2

REPORT INFORMATION
  Report Type: Spontaneous
  Country: NL (occurrence: NL)
  Receive Date: 20190607
  Receipt Date: 20190607
  Transmission Date: 20190711
  Serious: Yes (Disabling)
  Sender: FDA-Public Use
  Company Number: NL-AUROBINDO-AUR-APL-2019-031810

PATIENT

DRUGS (2)
  1. VENLAFAXINE AUROBINDO PROLONGED RELEASE TABLET 225 MG [Suspect]
     Active Substance: VENLAFAXINE HYDROCHLORIDE
     Indication: DEPRESSION
     Dosage: 225 MILLIGRAM, DAILY (1 TABLET A DAY)
     Route: 048
     Dates: start: 20190314
  2. ETHINYLESTRADIOL/LEVONORGESTREL [Concomitant]
     Active Substance: ETHINYL ESTRADIOL\LEVONORGESTREL
     Indication: PRODUCT USED FOR UNKNOWN INDICATION
     Dosage: UNK
     Route: 065
     Dates: start: 20190329

REACTIONS (1)
  - Product residue present [Recovering/Resolving]

NARRATIVE: CASE EVENT DATE: 20190424
